FAERS Safety Report 7390970-4 (Version None)
Quarter: 2011Q2

REPORT INFORMATION
  Report Type: 
  Country: None (occurrence: None)
  Receive Date: 20110404
  Receipt Date: 20110330
  Transmission Date: 20111010
  Serious: No
  Sender: FDA-Public Use
  Company Number: US-PFIZER INC-US-WYE-H14566510

PATIENT
  Sex: Male
  Weight: 63.5 kg

DRUGS (5)
  1. XANAX [Concomitant]
  2. ATIVAN [Concomitant]
  3. EFFEXOR XR [Suspect]
     Indication: DEPRESSION
  4. EFFEXOR XR [Suspect]
     Indication: ANXIETY
     Dosage: 75 MG, 2X/DAY
     Route: 065
     Dates: start: 20100301
  5. EFFEXOR XR [Suspect]
     Indication: PANIC DISORDER

REACTIONS (1)
  - DRUG INEFFECTIVE [None]
